FAERS Safety Report 10264145 (Version 1)
Quarter: 2014Q2

REPORT INFORMATION
  Report Type: Spontaneous
  Country: ES (occurrence: ES)
  Receive Date: 20140627
  Receipt Date: 20140627
  Transmission Date: 20141212
  Serious: Yes (Other)
  Sender: FDA-Public Use
  Company Number: ES-BRISTOL-MYERS SQUIBB COMPANY-21085162

PATIENT
  Age: 81 Year
  Sex: Male

DRUGS (4)
  1. ARIPIPRAZOLE [Suspect]
     Indication: MAJOR DEPRESSION
     Dosage: INITILAYY 10 MG THEN INCREASE:15MG DAILY?REDUCETO 5MG
  2. VENLAFAXINE HCL [Concomitant]
     Indication: MAJOR DEPRESSION
  3. LORAZEPAM [Concomitant]
     Indication: MAJOR DEPRESSION
  4. MIRTAZAPINE [Concomitant]
     Indication: MAJOR DEPRESSION

REACTIONS (2)
  - Parkinsonism [Recovering/Resolving]
  - Delusion [Recovering/Resolving]
